FAERS Safety Report 5256315-0 (Version None)
Quarter: 2007Q1

REPORT INFORMATION
  Report Type: 
  Country: None (occurrence: None)
  Receive Date: 20070306
  Receipt Date: 20070223
  Transmission Date: 20070707
  Serious: Yes (Other)
  Sender: FDA-Public Use
  Company Number: US-AVENTIS-200711256US

PATIENT
  Age: 59 Year
  Sex: Male

DRUGS (6)
  1. LANTUS [Suspect]
     Dates: start: 20060101
  2. OPTICLIK (INSULIN INJECTION PEN) [Suspect]
  3. PREDNISONE [Concomitant]
     Dosage: DOSE: UNK
  4. MESTINON [Concomitant]
     Dosage: DOSE: UNK
  5. IMURAN                             /00001501/ [Concomitant]
     Dosage: DOSE: UNK
  6. GLUCOPHAGE [Concomitant]
     Dosage: DOSE: UNK

REACTIONS (3)
  - CONDITION AGGRAVATED [None]
  - MUSCLE DISORDER [None]
  - MYASTHENIA GRAVIS [None]
